FAERS Safety Report 9508210 (Version 1)
Quarter: 2013Q1

REPORT INFORMATION
  Report Type: Spontaneous
  Country: US (occurrence: None)
  Receive Date: 20130305
  Receipt Date: 20130305
  Transmission Date: 20140127
  Serious: Yes (Other)
  Sender: FDA-Public Use
  Company Number: 163-21880-12082644

PATIENT
  Age: 77 Year
  Sex: Male
  Weight: 84.37 kg

DRUGS (4)
  1. REVLIMID (LENALIDOMIDE) (25 MILLIGRAM, CAPSULES) [Suspect]
     Indication: PLASMA CELL MYELOMA
     Dosage: CAPSULE, 25 MG, 21 IN 28 D, PO
     Dates: start: 20120723, end: 20120827
  2. DECADRON (DEXAMETHASONE) [Concomitant]
  3. PERCOCET (OXYCOCET) [Concomitant]
  4. COMPAZINE (PROCHLORPERAZINE EDISYLATE) [Concomitant]

REACTIONS (2)
  - Full blood count decreased [None]
  - Anaemia [None]
